FAERS Safety Report 7276672-3 (Version None)
Quarter: 2011Q1

REPORT INFORMATION
  Report Type: 
  Country: None (occurrence: None)
  Receive Date: 20110204
  Receipt Date: 20110201
  Transmission Date: 20110831
  Serious: Yes (Congenital Anomaly)
  Sender: FDA-Public Use
  Company Number: GB-MERCK-1010GBR00065B1

PATIENT

DRUGS (3)
  1. EMTRICITABINE AND TENOFOVIR DISOPROXIL FUMARATE [Concomitant]
     Route: 065
  2. ETRAVIRINE [Concomitant]
     Route: 065
  3. ISENTRESS [Suspect]
     Route: 064

REACTIONS (1)
  - EXOMPHALOS [None]
